FAERS Safety Report 7414708-7 (Version None)
Quarter: 2011Q2

REPORT INFORMATION
  Report Type: 
  Country: None (occurrence: None)
  Receive Date: 20110414
  Receipt Date: 20110202
  Transmission Date: 20111010
  Serious: No
  Sender: FDA-Public Use
  Company Number: US-B.I. PHARMACEUTICALS,INC./RIDGEFIELD-2011-BP-03601BP

PATIENT
  Sex: Male

DRUGS (13)
  1. ACETAMINOPHEN [Concomitant]
  2. DULCOLAX [Concomitant]
  3. CARAFATE [Concomitant]
  4. COLACE [Concomitant]
  5. RESTORIL [Concomitant]
  6. ASPIRIN [Concomitant]
  7. COZAAR [Concomitant]
  8. PRILOSEC [Concomitant]
  9. BETAPACE [Concomitant]
  10. CYMBALTA [Concomitant]
  11. LASIX [Concomitant]
  12. PRADAXA [Suspect]
     Indication: ATRIAL FIBRILLATION
     Dosage: 300 MG
     Route: 048
     Dates: start: 20101129
  13. ZOCOR [Concomitant]

REACTIONS (1)
  - INTERNATIONAL NORMALISED RATIO [None]
